FAERS Safety Report 6067805-5 (Version None)
Quarter: 2009Q1

REPORT INFORMATION
  Report Type: 
  Country: None (occurrence: None)
  Receive Date: 20090205
  Receipt Date: 20090204
  Transmission Date: 20090719
  Serious: Yes (Hospitalization)
  Sender: FDA-Public Use
  Company Number: FR-MERCK-0902FRA00010

PATIENT
  Age: 83 Year
  Sex: Female

DRUGS (15)
  1. PRIMAXIN [Suspect]
     Indication: INFECTION
     Route: 041
     Dates: start: 20081010, end: 20081115
  2. EPOETIN BETA [Concomitant]
     Route: 065
  3. BISOPROLOL [Concomitant]
     Route: 065
  4. HYDROXYZINE HYDROCHLORIDE [Concomitant]
     Route: 065
  5. ASPIRIN LYSINE [Concomitant]
     Route: 065
  6. NICARDIPINE HYDROCHLORIDE [Concomitant]
     Route: 065
  7. TRIMEBUTINE MALEATE [Concomitant]
     Route: 065
  8. ATORVASTATIN CALCIUM [Concomitant]
     Route: 065
  9. NICORANDIL [Concomitant]
     Route: 065
  10. FUROSEMIDE [Concomitant]
     Route: 065
  11. IRBESARTAN [Concomitant]
     Route: 065
  12. PANTOPRAZOLE SODIUM [Concomitant]
     Route: 065
  13. POTASSIUM CHLORIDE [Concomitant]
     Route: 065
  14. CHOLECALCIFEROL [Concomitant]
     Route: 065
  15. ACETAMINOPHEN [Concomitant]
     Route: 065

REACTIONS (1)
  - CLOSTRIDIAL INFECTION [None]
